FAERS Safety Report 4931832-9 (Version None)
Quarter: 2006Q1

REPORT INFORMATION
  Report Type: 
  Country: None (occurrence: None)
  Receive Date: 20060303
  Receipt Date: 20060216
  Transmission Date: 20060701
  Serious: Yes (Other)
  Sender: FDA-Public Use
  Company Number: NLWYE406017FEB06

PATIENT
  Sex: Female

DRUGS (2)
  1. ENBREL [Suspect]
     Indication: PSORIASIS
     Dates: start: 20050901, end: 20060124
  2. ENBREL [Suspect]
     Dates: start: 20060206

REACTIONS (3)
  - DEEP VEIN THROMBOSIS [None]
  - INFLAMMATION [None]
  - LIMB DISCOMFORT [None]
